FAERS Safety Report 11024284 (Version 1)
Quarter: 2015Q2

REPORT INFORMATION
  Report Type: Report from Study
  Country: IT (occurrence: IT)
  Receive Date: 20150414
  Receipt Date: 20150414
  Transmission Date: 20150821
  Serious: Yes (Hospitalization)
  Sender: FDA-Public Use
  Company Number: IT-AMGEN-ITACT2014075472

PATIENT
  Age: 23 Year
  Sex: Male
  Weight: 59 kg

DRUGS (21)
  1. ACICLOVIR [Concomitant]
     Active Substance: ACYCLOVIR
     Dosage: 400 MG, UNK
     Route: 048
     Dates: start: 20140828, end: 20141027
  2. TALOFEN [Concomitant]
     Active Substance: PROMAZINE HYDROCHLORIDE
     Dosage: 10 GTT, UNK
     Route: 048
     Dates: start: 20140910, end: 20140911
  3. DEXAMETHASONE. [Concomitant]
     Active Substance: DEXAMETHASONE
     Indication: ACUTE LYMPHOCYTIC LEUKAEMIA
     Dosage: 16- 20 MG, UNK
     Route: 048
     Dates: start: 20140828, end: 20140909
  4. MERCAPTOPURINE. [Concomitant]
     Active Substance: MERCAPTOPURINE
     Dosage: 100 MG, UNK
     Route: 048
     Dates: start: 20140909, end: 20140915
  5. PANTORC [Concomitant]
     Active Substance: PANTOPRAZOLE SODIUM
     Dosage: 40 MG, UNK
     Route: 048
     Dates: start: 20140829, end: 20141028
  6. TAVOR [Concomitant]
     Active Substance: LORAZEPAM
     Dosage: 1 MG, UNK
     Route: 048
     Dates: start: 20140910, end: 20140910
  7. BLINATUMOMAB [Suspect]
     Active Substance: BLINATUMOMAB
     Indication: ACUTE LYMPHOCYTIC LEUKAEMIA
     Dosage: 28 MUG, UNK
     Route: 041
     Dates: start: 20140902
  8. PARACETAMOL [Concomitant]
     Active Substance: ACETAMINOPHEN
     Dosage: 10 MG-1 G, UNK
     Dates: start: 20140902, end: 20140914
  9. CONTRAMAL [Concomitant]
     Active Substance: TRAMADOL HYDROCHLORIDE
     Dosage: 15 GTT, UNK
     Route: 048
     Dates: start: 20140905, end: 20140905
  10. RED BLOOD CELLS [Concomitant]
     Active Substance: HUMAN RED BLOOD CELL
     Dosage: 1 UNK, UNK
     Route: 042
     Dates: start: 20140903, end: 20141028
  11. ITRACONAZOLE. [Concomitant]
     Active Substance: ITRACONAZOLE
     Dosage: 200 MG, UNK
     Route: 048
     Dates: start: 20140901, end: 20140923
  12. BISOPROLOL [Concomitant]
     Active Substance: BISOPROLOL
     Dosage: 1.25 MG, UNK
     Route: 048
     Dates: start: 2013
  13. XANAX [Concomitant]
     Active Substance: ALPRAZOLAM
     Dosage: 10 GTT, UNK
     Route: 048
     Dates: start: 2014, end: 20141027
  14. ALLOPURINOL. [Concomitant]
     Active Substance: ALLOPURINOL
     Dosage: 300 MG, UNK
     Route: 048
     Dates: start: 20140828, end: 20141128
  15. LEVOFLOXACIN. [Concomitant]
     Active Substance: LEVOFLOXACIN
     Dosage: 500 MG, UNK
     Route: 048
     Dates: start: 20140901, end: 20141125
  16. VINBLASTINE [Concomitant]
     Active Substance: VINBLASTINE
     Dosage: 10 MG, UNK
     Route: 042
     Dates: start: 20140912, end: 20140912
  17. PLATELETS [Concomitant]
     Active Substance: HUMAN PLATELET, ALLOGENIC
     Dosage: 1 UNK, EVERY OTHER DAY
     Route: 042
     Dates: start: 20140905, end: 20141028
  18. ZOFENOPRIL [Concomitant]
     Active Substance: ZOFENOPRIL
     Dosage: 7.5 MG, UNK
     Route: 048
     Dates: start: 2013
  19. CALCIUM GLUCONATE. [Concomitant]
     Active Substance: CALCIUM GLUCONATE
     Dosage: UNK, UNK
     Route: 042
     Dates: start: 20140912, end: 20140912
  20. MALOXINE [Concomitant]
     Active Substance: PYRIMETHAMINE\SULFADOXINE
     Dosage: 1 UNK, UNK
     Route: 048
     Dates: start: 20140905, end: 20140905
  21. POTASSIUM CHLORIDE. [Concomitant]
     Active Substance: POTASSIUM CHLORIDE
     Dosage: 40 MEQ, UNK
     Route: 042
     Dates: start: 20140913, end: 20140916

REACTIONS (2)
  - Febrile neutropenia [Recovered/Resolved]
  - Pancytopenia [Recovered/Resolved]

NARRATIVE: CASE EVENT DATE: 20140923
